FAERS Safety Report 7581293-9 (Version None)
Quarter: 2011Q2

REPORT INFORMATION
  Report Type: 
  Country: None (occurrence: None)
  Receive Date: 20110629
  Receipt Date: 20110624
  Transmission Date: 20111010
  Serious: Yes (Other)
  Sender: FDA-Public Use
  Company Number: JP-PFIZER INC-2011124041

PATIENT

DRUGS (2)
  1. CADUET [Suspect]
     Indication: HYPERCHOLESTEROLAEMIA
  2. CADUET [Suspect]
     Indication: HYPERTENSION
     Dosage: 5 MG/5 MG
     Route: 048

REACTIONS (2)
  - VISION BLURRED [None]
  - DEMENTIA [None]
